FAERS Safety Report 7306231-5 (Version None)
Quarter: 2011Q1

REPORT INFORMATION
  Report Type: 
  Country: None (occurrence: None)
  Receive Date: 20110222
  Receipt Date: 20110209
  Transmission Date: 20110831
  Serious: Yes (Hospitalization, Other)
  Sender: FDA-Public Use
  Company Number: PHHY2011GB10503

PATIENT
  Age: 21 Year
  Sex: Female

DRUGS (8)
  1. TRAMADOL HCL [Suspect]
     Indication: ABDOMINAL PAIN
     Dosage: 50 MG, TID
  2. HYDROCORTISONE [Concomitant]
     Route: 048
  3. OMEPRAZOLE [Concomitant]
     Dosage: 40 MG, QD
  4. SUMATRIPTAN [Concomitant]
     Dosage: 50 MG, QD
  5. METOCLOPRAMIDE HCL [Concomitant]
     Dosage: 10 MG, TID
  6. TRAMADOL HCL [Suspect]
     Dosage: 100 MG, QID
  7. IBUPROFEN [Concomitant]
     Dosage: 400 MG, UNK
  8. CYCLIZINE [Concomitant]
     Dosage: 100 MG, TID

REACTIONS (2)
  - HYPERPROLACTINAEMIA [None]
  - ADRENAL INSUFFICIENCY [None]
